FAERS Safety Report 4510130-1 (Version None)
Quarter: 2004Q4

REPORT INFORMATION
  Report Type: 
  Country: None (occurrence: None)
  Receive Date: 20041124
  Receipt Date: 20041021
  Transmission Date: 20050328
  Serious: Yes (Other)
  Sender: FDA-Public Use
  Company Number: FR-JNJFOC-20040204070

PATIENT
  Age: 28 Year
  Sex: Female

DRUGS (2)
  1. REMICADE [Suspect]
     Indication: CROHN'S DISEASE
     Dosage: PATIENT WAS TREATED EVERY 6 TO 8 WEEKS.
     Route: 042
  2. CORTANCYL [Concomitant]

REACTIONS (8)
  - CAESAREAN SECTION [None]
  - DRUG EXPOSURE DURING PREGNANCY [None]
  - DRUG INTOLERANCE [None]
  - DRUG RESISTANCE [None]
  - GESTATIONAL DIABETES [None]
  - PERINEAL FISTULA [None]
  - PREGNANCY [None]
  - THERAPEUTIC RESPONSE DECREASED [None]
